FAERS Safety Report 9664064 (Version 1)
Quarter: 2013Q4

REPORT INFORMATION
  Report Type: Spontaneous
  Country: CA (occurrence: CA)
  Receive Date: 20131101
  Receipt Date: 20131101
  Transmission Date: 20140711
  Serious: Yes (Death, Hospitalization)
  Sender: FDA-Public Use
  Company Number: CA-BAYER-2013-129968

PATIENT
  Age: 27 Year
  Sex: Female

DRUGS (1)
  1. STIVARGA [Suspect]
     Indication: GASTROINTESTINAL STROMAL CANCER
     Dosage: 160 MG/DAY (DAYS 1-21 OF A 28-DAY CYCLE)
     Route: 048
     Dates: start: 20130411

REACTIONS (2)
  - Gastrointestinal stromal cancer [Fatal]
  - Asthenia [Fatal]
